FAERS Safety Report 17633392 (Version 1)
Quarter: 2020Q2

REPORT INFORMATION
  Report Type: Spontaneous
  Country: US (occurrence: US)
  Receive Date: 20200407
  Receipt Date: 20200407
  Transmission Date: 20200713
  Serious: No
  Sender: FDA-Public Use
  Company Number: US-INCYTE CORPORATION-2020IN003177

PATIENT

DRUGS (2)
  1. HYDREA [Suspect]
     Active Substance: HYDROXYUREA
     Route: 065
  2. JAKAFI [Suspect]
     Active Substance: RUXOLITINIB
     Route: 065

REACTIONS (7)
  - White blood cell count increased [Unknown]
  - Pruritus [Unknown]
  - Haematocrit increased [Unknown]
  - Platelet count increased [Unknown]
  - Splenomegaly [Unknown]
  - Red blood cell count increased [Unknown]
  - Night sweats [Unknown]
